FAERS Safety Report 8871729 (Version 1)
Quarter: 2012Q4

REPORT INFORMATION
  Report Type: 
  Country: US (occurrence: US)
  Receive Date: 20121030
  Receipt Date: 20121030
  Transmission Date: 20130627
  Serious: No
  Sender: FDA-Public Use
  Company Number: US-009507513-1210USA000200

PATIENT
  Sex: Male

DRUGS (8)
  1. PEGINTRON [Suspect]
     Indication: HEPATITIS C
     Dosage: 120 Microgram in 0.5 ml, qw
     Route: 058
  2. RIBAPAK [Suspect]
     Dosage: 1000 mg, qd
  3. HYDROCHLOROTHIAZIDE (+) LISINOPRIL [Concomitant]
     Dosage: 10-12.5, UNK
     Route: 048
  4. CYANOCOBALAMIN [Concomitant]
     Dosage: 1 UNK, UNK
     Route: 048
  5. ASCORBIC ACID [Concomitant]
  6. VITAMIN E [Concomitant]
  7. MOTRIN [Concomitant]
  8. TRAZODONE HYDROCHLORIDE [Concomitant]

REACTIONS (9)
  - Vitreous floaters [Unknown]
  - Dizziness [Unknown]
  - Headache [Unknown]
  - Fatigue [Unknown]
  - Dyspnoea [Unknown]
  - Nausea [Unknown]
  - Visual impairment [Unknown]
  - Vision blurred [Unknown]
  - Depressed mood [Unknown]
